FAERS Safety Report 8582078-7 (Version None)
Quarter: 2012Q2

REPORT INFORMATION
  Report Type: 
  Country: None (occurrence: None)
  Receive Date: 20120423
  Receipt Date: 20100913
  Transmission Date: 20120825
  Serious: Yes (Other)
  Sender: FDA-Public Use
  Company Number: PHHY2010US50612

PATIENT
  Sex: Female
  Weight: 106.8 kg

DRUGS (1)
  1. EXJADE [Suspect]
     Indication: MULTIPLE MYELOMA
     Dosage: 1500 MG, QD, ORAL
     Route: 048
     Dates: start: 20100707

REACTIONS (1)
  - RENAL IMPAIRMENT [None]
